FAERS Safety Report 7405285-5 (Version None)
Quarter: 2011Q2

REPORT INFORMATION
  Report Type: 
  Country: None (occurrence: None)
  Receive Date: 20110404
  Receipt Date: 20110317
  Transmission Date: 20111010
  Serious: No
  Sender: FDA-Public Use
  Company Number: 11-141

PATIENT
  Age: 67 Year
  Sex: Male

DRUGS (2)
  1. PHYLLOCONTIN [Concomitant]
  2. PHORPAIN (IBUPROFEN) [Suspect]
     Indication: PAIN
     Dosage: TWICE DAILY TOPICAL
     Route: 061
     Dates: start: 20110202

REACTIONS (7)
  - CELLULITIS [None]
  - APPLICATION SITE WARMTH [None]
  - APPLICATION SITE ERYTHEMA [None]
  - CHEMICAL BURN OF SKIN [None]
  - BLISTER [None]
  - HYPERSENSITIVITY [None]
  - INFECTION [None]
